FAERS Safety Report 23693648 (Version 1)
Quarter: 2024Q2

REPORT INFORMATION
  Report Type: Spontaneous
  Country: US (occurrence: US)
  Receive Date: 20240401
  Receipt Date: 20240401
  Transmission Date: 20240716
  Serious: No
  Sender: FDA-Public Use
  Company Number: US-009507513-2403USA007181

PATIENT
  Age: 48 Year

DRUGS (8)
  1. TEMODAR [Suspect]
     Active Substance: TEMOZOLOMIDE
     Indication: Oligodendroglioma
     Dosage: UNK
     Route: 048
  2. TEMODAR [Suspect]
     Active Substance: TEMOZOLOMIDE
     Dosage: STARTING DOSE OF 5 MG, AND DOSE ESCALATIONS OCCURRED EVERY 45 MINUTES UNTIL CUMULATIVE THERAPEUTIC D
     Route: 048
  3. TEMODAR [Suspect]
     Active Substance: TEMOZOLOMIDE
     Dosage: 10 MG, AND DOSE ESCALATIONS OCCURRED EVERY 45 MINUTES UNTIL CUMULATIVE THERAPEUTIC DOSES WERE REACHE
     Route: 048
  4. TEMODAR [Suspect]
     Active Substance: TEMOZOLOMIDE
     Dosage: 15 MG, AND DOSE ESCALATIONS OCCURRED EVERY 45 MINUTES UNTIL CUMULATIVE THERAPEUTIC DOSES WERE REACHE
     Route: 048
  5. TEMODAR [Suspect]
     Active Substance: TEMOZOLOMIDE
     Dosage: 20 MG, AND DOSE ESCALATIONS OCCURRED EVERY 45 MINUTES UNTIL CUMULATIVE THERAPEUTIC DOSES WERE REACHE
     Route: 048
  6. TEMODAR [Suspect]
     Active Substance: TEMOZOLOMIDE
     Dosage: 40 MG, AND DOSE ESCALATIONS OCCURRED EVERY 45 MINUTES UNTIL CUMULATIVE THERAPEUTIC DOSES WERE REACHE
     Route: 048
  7. TEMODAR [Suspect]
     Active Substance: TEMOZOLOMIDE
     Dosage: 60 MG, AND DOSE ESCALATIONS OCCURRED EVERY 45 MINUTES UNTIL CUMULATIVE THERAPEUTIC DOSES WERE REACHE
     Route: 048
  8. TEMODAR [Suspect]
     Active Substance: TEMOZOLOMIDE
     Dosage: 80 MG, AND DOSE ESCALATIONS OCCURRED EVERY 45 MINUTES UNTIL CUMULATIVE THERAPEUTIC DOSES WERE REACHE
     Route: 048

REACTIONS (3)
  - Drug eruption [Unknown]
  - Fixed eruption [Unknown]
  - Product use in unapproved indication [Unknown]
